FAERS Safety Report 8507812-3 (Version None)
Quarter: 2012Q3

REPORT INFORMATION
  Report Type: 
  Country: None (occurrence: None)
  Receive Date: 20120713
  Receipt Date: 20120710
  Transmission Date: 20120928
  Serious: Yes (Hospitalization)
  Sender: FDA-Public Use
  Company Number: PHHY2012AU059795

PATIENT
  Sex: Female

DRUGS (3)
  1. EXFORGE [Suspect]
     Dosage: 1 DF(160 MG VAL/5 MG AMLO)
     Dates: start: 20120501
  2. EXFORGE [Suspect]
     Dosage: 1 DF(320 MG VAL/5 MG AMLO)
  3. EXFORGE [Suspect]
     Dosage: UNK

REACTIONS (3)
  - BLOOD PRESSURE INADEQUATELY CONTROLLED [None]
  - DIZZINESS [None]
  - BLOOD SODIUM DECREASED [None]
